FAERS Safety Report 10078709 (Version 1)
Quarter: 2014Q2

REPORT INFORMATION
  Report Type: Spontaneous
  Country: NL (occurrence: NL)
  Receive Date: 20140415
  Receipt Date: 20140415
  Transmission Date: 20141212
  Serious: Yes (Death, Hospitalization)
  Sender: FDA-Public Use
  Company Number: NL-TEVA-474921ISR

PATIENT
  Age: 65 Year
  Sex: Male
  Weight: 66 kg

DRUGS (2)
  1. OXALIPLATINE INFUUS 1MG/MG [Suspect]
     Indication: COLON CANCER
     Dosage: EXTRA INFO: 231 MG INFUSION
     Route: 042
     Dates: start: 20140127
  2. XELODA TABLET FILMOMHULD 500MG [Interacting]
     Indication: COLON CANCER
     Dosage: 2000 MILLIGRAM DAILY; TWICE DAILY 2 PIECES, EXTRA INFO: 500 MG
     Route: 048
     Dates: start: 20140127, end: 20140210

REACTIONS (3)
  - Intestinal ischaemia [Fatal]
  - Drug interaction [Fatal]
  - Sepsis [Fatal]
